FAERS Safety Report 8349084-9 (Version None)
Quarter: 2012Q2

REPORT INFORMATION
  Report Type: 
  Country: None (occurrence: None)
  Receive Date: 20120508
  Receipt Date: 20120423
  Transmission Date: 20120825
  Serious: Yes (Hospitalization, Other)
  Sender: FDA-Public Use
  Company Number: 2012P1017802

PATIENT
  Age: 68 Year
  Sex: Male
  Weight: 58.9676 kg

DRUGS (3)
  1. SPIRONOLACTONE [Concomitant]
  2. DIGOXIN [Suspect]
     Indication: CARDIAC FAILURE CONGESTIVE
     Dosage: .25 MG;QD;PO
     Route: 048
     Dates: start: 20110811
  3. BLINDED TRIAL MEDICATION (NO PREF. NAME) [Suspect]
     Indication: CARDIAC FAILURE CONGESTIVE
     Dosage: PO
     Route: 048
     Dates: start: 20100106

REACTIONS (10)
  - DYSPNOEA [None]
  - FLUID OVERLOAD [None]
  - TOXICITY TO VARIOUS AGENTS [None]
  - ASTHENIA [None]
  - BLOOD UREA INCREASED [None]
  - BRAIN NATRIURETIC PEPTIDE INCREASED [None]
  - FATIGUE [None]
  - HYPOTENSION [None]
  - GLOMERULAR FILTRATION RATE DECREASED [None]
  - CARDIAC FAILURE ACUTE [None]
